FAERS Safety Report 5676312-0 (Version None)
Quarter: 2008Q1

REPORT INFORMATION
  Report Type: 
  Country: None (occurrence: None)
  Receive Date: 20080321
  Receipt Date: 20080310
  Transmission Date: 20080703
  Serious: Yes (Hospitalization, Other)
  Sender: FDA-Public Use
  Company Number: US-PFIZER INC-2008015430

PATIENT
  Sex: Female
  Weight: 70.454 kg

DRUGS (15)
  1. CHANTIX [Suspect]
     Indication: SMOKING CESSATION THERAPY
     Route: 048
     Dates: start: 20071201, end: 20080101
  2. DILANTIN [Concomitant]
     Route: 048
  3. PREMARIN [Concomitant]
  4. PROZAC [Concomitant]
  5. PHENOBARBITONE [Concomitant]
     Route: 048
  6. LORATADINE [Concomitant]
     Route: 048
  7. LEVOTHROID [Concomitant]
     Route: 048
  8. PREVACID [Concomitant]
  9. HYDROCORTISONE [Concomitant]
  10. PULMICORT [Concomitant]
  11. COMBIVENT [Concomitant]
     Route: 055
  12. FLONASE [Concomitant]
  13. PROTONIX [Concomitant]
  14. LORTAB [Concomitant]
  15. DIAZEPAM [Concomitant]

REACTIONS (6)
  - DEHYDRATION [None]
  - GASTROENTERITIS VIRAL [None]
  - RESPIRATORY DISORDER [None]
  - STARVATION [None]
  - URINARY RETENTION [None]
  - WEIGHT DECREASED [None]
